FAERS Safety Report 5125234-2 (Version None)
Quarter: 2006Q4

REPORT INFORMATION
  Report Type: 
  Country: None (occurrence: None)
  Receive Date: 20061011
  Receipt Date: 20061005
  Transmission Date: 20070319
  Serious: Yes (Other)
  Sender: FDA-Public Use
  Company Number: JP-ROXANE LABORATORIES, INC-2006-BP-11718RO

PATIENT
  Age: 35 Year
  Sex: Male

DRUGS (13)
  1. CYCLOPHOSPHAMIDE [Suspect]
     Indication: BONE MARROW CONDITIONING REGIMEN
  2. CYCLOPHOSPHAMIDE [Suspect]
     Indication: PROPHYLAXIS AGAINST TRANSPLANT REJECTION
  3. METHOTREXATE [Suspect]
     Indication: PROPHYLAXIS AGAINST TRANSPLANT REJECTION
     Dosage: 15 MG/M2 ON DAY 1
  4. METHOTREXATE [Suspect]
     Dosage: 10 MG/M2 ON DAYS 3 AND 6
  5. CYTARABINE [Suspect]
     Indication: BONE MARROW CONDITIONING REGIMEN
     Dosage: 12 G/M2 ONCE
  6. G-CSF [Suspect]
     Indication: DELAYED ENGRAFTMENT
     Dosage: 5 MCG/KG/DAY
  7. CYCLOSPORINE [Suspect]
     Indication: PROPHYLAXIS AGAINST TRANSPLANT REJECTION
     Dosage: 3 MG/KG/DAY
  8. ACYCLOVIR [Suspect]
     Indication: ANTIVIRAL PROPHYLAXIS
     Dosage: 1 GM/DAY DAYS -3 TO 35
     Route: 048
  9. ACYCLOVIR [Suspect]
     Indication: HERPES DERMATITIS
     Route: 042
  10. ACYCLOVIR [Suspect]
     Indication: ENCEPHALITIS HERPES
     Route: 042
  11. PREDNISOLONE [Suspect]
     Indication: GRAFT VERSUS HOST DISEASE
     Dosage: 1 MG/KG/DAY
  12. PREDNISOLONE [Suspect]
  13. PREDNISOLONE [Suspect]

REACTIONS (10)
  - DIPLOPIA [None]
  - ENCEPHALITIS HERPES [None]
  - FACIAL PALSY [None]
  - GRAFT VERSUS HOST DISEASE [None]
  - HEARING IMPAIRED [None]
  - HERPES ZOSTER [None]
  - NEURALGIA [None]
  - NEUROTOXICITY [None]
  - OBLITERATIVE BRONCHIOLITIS [None]
  - PNEUMOMEDIASTINUM [None]
